FAERS Safety Report 7328012-9 (Version None)
Quarter: 2011Q1

REPORT INFORMATION
  Report Type: 
  Country: None (occurrence: None)
  Receive Date: 20110225
  Receipt Date: 20110225
  Transmission Date: 20110831
  Serious: Yes (Other)
  Sender: FDA-Public Use
  Company Number: None

PATIENT
  Age: 61 Year
  Sex: Female
  Weight: 92.0802 kg

DRUGS (1)
  1. RECLAST [Suspect]
     Indication: OSTEOPOROSIS
     Dosage: 100ML ONCE YEARLY IV
     Route: 042
     Dates: start: 20110210

REACTIONS (5)
  - BACK PAIN [None]
  - CHEST PAIN [None]
  - DRUG ERUPTION [None]
  - RASH MACULO-PAPULAR [None]
  - DYSPNOEA [None]
